FAERS Safety Report 9254053 (Version 1)
Quarter: 2013Q2

REPORT INFORMATION
  Report Type: Spontaneous
  Country: SZ (occurrence: None)
  Receive Date: 20130419
  Receipt Date: 20130419
  Transmission Date: 20140414
  Serious: Yes (Disabling)
  Sender: FDA-Public Use
  Company Number: SYM-2013-02605

PATIENT
  Age: 82 Year
  Sex: Male

DRUGS (8)
  1. DILZEM (DILTIAZEM) [Suspect]
     Indication: ESSENTIAL HYPERTENSION
     Route: 048
  2. ASPIRIN (ACETYLSALICYLIC ACID) [Concomitant]
  3. SORTIS (ATORVASTATIN CALCIUM) [Concomitant]
  4. NEXIUM (ESOMEPRAZOLE MAGNESIUM) [Concomitant]
  5. ANDRIOL (TESTOSTERONE UNDECANOATE) [Concomitant]
  6. DIOVAN (VALSARTAN) [Concomitant]
  7. TRANSTEC (BUPRENORPHINE) [Concomitant]
  8. CHONDROSULF (CHONDROITIN SULFATE SODIUM) [Suspect]

REACTIONS (1)
  - Parkinsonism [None]
